FAERS Safety Report 25136589 (Version 2)
Quarter: 2025Q2

REPORT INFORMATION
  Report Type: Spontaneous
  Country: AU (occurrence: AU)
  Receive Date: 20250328
  Receipt Date: 20250403
  Transmission Date: 20250716
  Serious: Yes (Other)
  Sender: SANDOZ
  Company Number: AU-002147023-PHHY2016AU132560

PATIENT
  Age: 35 Year
  Sex: Female

DRUGS (21)
  1. BASILIXIMAB [Suspect]
     Active Substance: BASILIXIMAB
     Indication: Prophylaxis against transplant rejection
     Route: 065
  2. EVEROLIMUS [Suspect]
     Active Substance: EVEROLIMUS
     Indication: Lung transplant
     Route: 065
  3. EVEROLIMUS [Suspect]
     Active Substance: EVEROLIMUS
     Indication: Immunosuppressant drug therapy
  4. EVEROLIMUS [Suspect]
     Active Substance: EVEROLIMUS
     Indication: Prophylaxis against transplant rejection
  5. INTRAGAM P [Suspect]
     Active Substance: HUMAN IMMUNOGLOBULIN G
     Indication: Prophylaxis against transplant rejection
     Route: 065
  6. INTRAGAM P [Suspect]
     Active Substance: HUMAN IMMUNOGLOBULIN G
     Indication: Antiviral prophylaxis
  7. MYCOPHENOLATE MOFETIL [Suspect]
     Active Substance: MYCOPHENOLATE MOFETIL
     Indication: Lung transplant
     Route: 065
  8. MYCOPHENOLATE MOFETIL [Suspect]
     Active Substance: MYCOPHENOLATE MOFETIL
     Indication: Immunosuppressant drug therapy
  9. MYCOPHENOLATE MOFETIL [Suspect]
     Active Substance: MYCOPHENOLATE MOFETIL
     Indication: Prophylaxis against transplant rejection
  10. PREDNISOLONE [Suspect]
     Active Substance: PREDNISOLONE
     Indication: Prophylaxis against transplant rejection
     Route: 065
  11. PREDNISOLONE [Suspect]
     Active Substance: PREDNISOLONE
     Indication: Immunosuppressant drug therapy
  12. PREDNISOLONE [Suspect]
     Active Substance: PREDNISOLONE
     Indication: Lung transplant
  13. TACROLIMUS [Suspect]
     Active Substance: TACROLIMUS
     Indication: Prophylaxis against transplant rejection
     Route: 065
  14. TACROLIMUS [Suspect]
     Active Substance: TACROLIMUS
     Indication: Immunosuppressant drug therapy
  15. TACROLIMUS [Suspect]
     Active Substance: TACROLIMUS
     Indication: Lung transplant
  16. VALGANCICLOVIR [Suspect]
     Active Substance: VALGANCICLOVIR
     Indication: Product used for unknown indication
     Route: 065
  17. PREDNISOLONE [Concomitant]
     Active Substance: PREDNISOLONE
     Indication: Immunosuppression
     Route: 065
  18. PREDNISOLONE [Concomitant]
     Active Substance: PREDNISOLONE
     Indication: Lung transplant
     Route: 065
  19. PREDNISOLONE [Concomitant]
     Active Substance: PREDNISOLONE
     Indication: Immunosuppressant drug therapy
  20. TACROLIMUS [Concomitant]
     Active Substance: TACROLIMUS
     Indication: Immunosuppressant drug therapy
     Route: 065
  21. TACROLIMUS [Concomitant]
     Active Substance: TACROLIMUS
     Indication: Lung transplant
     Route: 065

REACTIONS (5)
  - Pulmonary sepsis [Recovered/Resolved]
  - Proteinuria [Unknown]
  - Leukopenia [Unknown]
  - Product use in unapproved indication [Unknown]
  - Product use in unapproved indication [Unknown]
